FAERS Safety Report 5661846-5 (Version None)
Quarter: 2008Q1

REPORT INFORMATION
  Report Type: 
  Country: None (occurrence: None)
  Receive Date: 20080312
  Receipt Date: 20080303
  Transmission Date: 20080703
  Serious: Yes (Other)
  Sender: FDA-Public Use
  Company Number: BR-SANOFI-SYNTHELABO-A01200802525

PATIENT

DRUGS (2)
  1. CHLOROQUINE PHOSPHATE [Suspect]
     Indication: RHEUMATOID ARTHRITIS
     Dosage: UNK
     Route: 065
  2. METHOTREXATE [Concomitant]
     Dosage: UNK
     Route: 065

REACTIONS (2)
  - CHEST PAIN [None]
  - ELECTROCARDIOGRAM QT PROLONGED [None]
